FAERS Safety Report 4560320-7 (Version None)
Quarter: 2005Q1

REPORT INFORMATION
  Report Type: 
  Country: None (occurrence: None)
  Receive Date: 20050125
  Receipt Date: 20050117
  Transmission Date: 20050727
  Serious: Yes (Hospitalization, Other)
  Sender: FDA-Public Use
  Company Number: PHFR2005GB00587

PATIENT
  Sex: Female

DRUGS (4)
  1. CARBAMAZEPINE [Suspect]
     Indication: BIPOLAR DISORDER
     Dosage: 200 MG/DAY
     Route: 048
     Dates: start: 20041001
  2. CARBAMAZEPINE [Suspect]
     Dosage: 600 MG/DAY
     Route: 048
  3. ANTIBIOTICS [Suspect]
     Route: 065
  4. ERYTHROMYCIN [Suspect]

REACTIONS (15)
  - APNOEIC ATTACK [None]
  - ASTHMA [None]
  - CONVULSION [None]
  - COUGH [None]
  - DYSPNOEA [None]
  - GENERAL PHYSICAL HEALTH DETERIORATION [None]
  - HYPERSENSITIVITY [None]
  - LOWER RESPIRATORY TRACT INFECTION [None]
  - MEDICATION ERROR [None]
  - PERTUSSIS [None]
  - PNEUMONIA [None]
  - PYREXIA [None]
  - RESPIRATORY ARREST [None]
  - VOMITING [None]
  - WHEEZING [None]
